FAERS Safety Report 24360336 (Version 2)
Quarter: 2024Q3

REPORT INFORMATION
  Report Type: Spontaneous
  Country: US (occurrence: US)
  Receive Date: 20240925
  Receipt Date: 20240930
  Transmission Date: 20241016
  Serious: No
  Sender: Haleon PLC
  Company Number: US-HALEON-2198088

PATIENT
  Sex: Male
  Weight: 88.451 kg

DRUGS (1)
  1. ADVIL [Suspect]
     Active Substance: IBUPROFEN\IBUPROFEN SODIUM
     Indication: Product used for unknown indication
     Dosage: EXPDATE:202602
     Dates: end: 20240917

REACTIONS (4)
  - Hypoaesthesia oral [Unknown]
  - Throat irritation [Unknown]
  - Oral discomfort [Unknown]
  - Oropharyngeal discomfort [Unknown]
